FAERS Safety Report 9779974 (Version 2)
Quarter: 2014Q1

REPORT INFORMATION
  Report Type: Spontaneous
  Country: US (occurrence: US)
  Receive Date: 20131223
  Receipt Date: 20140108
  Transmission Date: 20141002
  Serious: No
  Sender: FDA-Public Use
  Company Number: US-TEVA-447737USA

PATIENT
  Sex: Female
  Weight: 61.29 kg

DRUGS (1)
  1. PARAGARD 380A [Suspect]
     Indication: CONTRACEPTION
     Dates: start: 2007, end: 20131126

REACTIONS (7)
  - Medical device complication [Unknown]
  - Bacterial vaginosis [Unknown]
  - Menorrhagia [Unknown]
  - Vaginal discharge [Unknown]
  - Pain [Unknown]
  - Dyspareunia [Unknown]
  - Vaginal haemorrhage [Unknown]
